FAERS Safety Report 5762693-6 (Version None)
Quarter: 2008Q2

REPORT INFORMATION
  Report Type: 
  Country: None (occurrence: None)
  Receive Date: 20080527
  Receipt Date: 20070927
  Transmission Date: 20081010
  Serious: Yes (Other)
  Sender: FDA-Public Use
  Company Number: 248549

PATIENT
  Age: 60 Year
  Sex: Female

DRUGS (3)
  1. HERCEPTIN [Suspect]
     Indication: BREAST CANCER
     Dates: end: 20070924
  2. ACE INHIBITOR (UNK INGREDIENTS) (ANGIOTENSIN-CONVERTING ENZYME INHIBIT [Concomitant]
  3. COQ-10 (UBIDECARENONE) [Concomitant]

REACTIONS (3)
  - DYSPNOEA [None]
  - FATIGUE [None]
  - GALLOP RHYTHM PRESENT [None]
